FAERS Safety Report 7784628-7 (Version None)
Quarter: 2011Q3

REPORT INFORMATION
  Report Type: 
  Country: None (occurrence: None)
  Receive Date: 20110926
  Receipt Date: 20110907
  Transmission Date: 20111222
  Serious: Yes (Other)
  Sender: FDA-Public Use
  Company Number: DSA_47572_2011

PATIENT
  Sex: Female
  Weight: 45.3597 kg

DRUGS (3)
  1. ATIVAN [Suspect]
     Indication: PRODUCT USED FOR UNKNOWN INDICATION
     Dosage: (1 MG, QD ORAL) ; (1 MG QD ORAL) ; (1 MG BID ORAL)
     Route: 048
     Dates: start: 20110101
  2. ATIVAN [Suspect]
     Indication: PRODUCT USED FOR UNKNOWN INDICATION
     Dosage: (1 MG, QD ORAL) ; (1 MG QD ORAL) ; (1 MG BID ORAL)
     Route: 048
     Dates: start: 20110601
  3. ATIVAN [Suspect]
     Indication: PRODUCT USED FOR UNKNOWN INDICATION
     Dosage: (1 MG, QD ORAL) ; (1 MG QD ORAL) ; (1 MG BID ORAL)
     Route: 048
     Dates: start: 20100101, end: 20110601

REACTIONS (6)
  - AMNESIA [None]
  - VISION BLURRED [None]
  - DIZZINESS [None]
  - INSOMNIA [None]
  - VITREOUS FLOATERS [None]
  - PALPITATIONS [None]
